FAERS Safety Report 10222494 (Version 1)
Quarter: 2014Q1

REPORT INFORMATION
  Report Type: Spontaneous
  Country: US (occurrence: None)
  Receive Date: 20140306
  Receipt Date: 20140306
  Transmission Date: 20141002
  Serious: Yes (Other)
  Sender: FDA-Public Use
  Company Number: 163-21880-13050443

PATIENT
  Age: 63 Year
  Sex: Male

DRUGS (10)
  1. REVLIMIB (LENALIDOMIDE) (CAPSULES) [Suspect]
     Indication: PLASMA CELL MYELOMA
     Dosage: 10 MG, 21 IN 21 D, PO
     Route: 048
     Dates: start: 20100920
  2. ATENOLOL (ATENOLOL) [Concomitant]
  3. FISH OIL (FISH OIL) [Concomitant]
  4. MVI (MVI) [Concomitant]
  5. SYMBICORT (SYMBICORT TURBUHALER ) [Concomitant]
  6. TAMSULOSIN HCL (TAMSULOSIN HYDROCHLORIDE) [Concomitant]
  7. ASPIRIN (ACETYLSALICYLIC ACID) [Concomitant]
  8. SPIRIVA (TIOTROPIUM BROMIDE) [Concomitant]
  9. FINASTERIDE (FINASTERIDE) [Concomitant]
  10. WARFARIN (WARFARIN) [Concomitant]

REACTIONS (1)
  - Thrombosis [None]
